FAERS Safety Report 15702336 (Version 1)
Quarter: 2018Q4

REPORT INFORMATION
  Report Type: Report from Study
  Country: None (occurrence: US)
  Receive Date: 20181210
  Receipt Date: 20181210
  Transmission Date: 20190205
  Serious: Yes (Other)
  Sender: FDA-Public Use
  Company Number: US-ABBVIE-18S-163-2583416-00

PATIENT
  Age: 48 Year
  Sex: Male

DRUGS (1)
  1. CREON [Suspect]
     Active Substance: PANCRELIPASE AMYLASE\PANCRELIPASE LIPASE\PANCRELIPASE PROTEASE
     Indication: PRODUCT USED FOR UNKNOWN INDICATION
     Route: 048

REACTIONS (4)
  - Polyp [Unknown]
  - Pancreaticoduodenectomy [Unknown]
  - Pancreatic carcinoma [Unknown]
  - Colonoscopy [Unknown]

NARRATIVE: CASE EVENT DATE: 2016
